FAERS Safety Report 15855938 (Version 1)
Quarter: 2019Q1

REPORT INFORMATION
  Report Type: Spontaneous
  Country: US (occurrence: US)
  Receive Date: 20190122
  Receipt Date: 20190122
  Transmission Date: 20190417
  Serious: Yes (Hospitalization, Other)
  Sender: FDA-Public Use
  Company Number: US-JNJFOC-20190116677

PATIENT
  Sex: Female

DRUGS (1)
  1. JOHNSONS BABY BABY POWDER UNSPECIFIED [ZINC OXIDE] [Suspect]
     Active Substance: ZINC OXIDE
     Indication: PRODUCT USED FOR UNKNOWN INDICATION
     Route: 061
     Dates: start: 1953

REACTIONS (1)
  - Benign ovarian tumour [Recovered/Resolved]

NARRATIVE: CASE EVENT DATE: 2003
